FAERS Safety Report 6335278-0 (Version None)
Quarter: 2009Q3

REPORT INFORMATION
  Report Type: 
  Country: None (occurrence: None)
  Receive Date: 20090831
  Receipt Date: 20090827
  Transmission Date: 20100115
  Serious: Yes (Hospitalization)
  Sender: FDA-Public Use
  Company Number: AU-BRISTOL-MYERS SQUIBB COMPANY-14758106

PATIENT
  Age: 42 Year
  Sex: Female
  Weight: 88 kg

DRUGS (3)
  1. ATAZANAVIR [Suspect]
     Dates: start: 20080403
  2. RITONAVIR [Suspect]
     Dates: start: 20080403
  3. TRUVADA [Suspect]
     Dates: start: 20080403

REACTIONS (1)
  - RENAL COLIC [None]
